FAERS Safety Report 5052851-0 (Version None)
Quarter: 2006Q3

REPORT INFORMATION
  Report Type: 
  Country: None (occurrence: None)
  Receive Date: 20060712
  Receipt Date: 20060630
  Transmission Date: 20061208
  Serious: Yes (Hospitalization, Other)
  Sender: FDA-Public Use
  Company Number: 200614410BWH

PATIENT
  Age: 78 Year
  Sex: Female

DRUGS (9)
  1. CIPRO [Suspect]
     Indication: PSEUDOMONAS INFECTION
     Dates: start: 20060501, end: 20060520
  2. LINEZOLID [Suspect]
     Indication: PSEUDOMONAS INFECTION
     Dates: start: 20060501, end: 20060520
  3. TOPROL-XL [Concomitant]
  4. SYNTHROID [Concomitant]
  5. LISINOPRIL [Concomitant]
  6. PROTONIX [Concomitant]
  7. TYLENOL REGULAR [Concomitant]
  8. XALATAN [Concomitant]
  9. STUDY DRUG [Concomitant]

REACTIONS (4)
  - CLOSTRIDIUM DIFFICILE TOXIN TEST POSITIVE [None]
  - MENTAL STATUS CHANGES [None]
  - PYREXIA [None]
  - RED BLOOD CELL COUNT DECREASED [None]
